FAERS Safety Report 8996674 (Version 1)
Quarter: 2013Q1

REPORT INFORMATION
  Report Type: Spontaneous
  Country: US (occurrence: US)
  Receive Date: 20130104
  Receipt Date: 20130104
  Transmission Date: 20140127
  Serious: Yes (Hospitalization)
  Sender: FDA-Public Use
  Company Number: US-BAYER-2012-136339

PATIENT
  Age: 26 Year
  Sex: Female
  Weight: 102.49 kg

DRUGS (8)
  1. YASMIN [Suspect]
     Dosage: UNK
  2. LEXAPRO [Concomitant]
     Dosage: UNK
  3. VALIUM [Concomitant]
     Dosage: UNK
  4. NAPROSYN [Concomitant]
     Dosage: UNK
  5. VICODIN [Concomitant]
     Dosage: UNK
  6. NITROGLYCERIN [Concomitant]
     Dosage: UNK
  7. MORPHINE [Concomitant]
     Dosage: UNK
  8. ORAL CONTRACEPTIVE NOS [Concomitant]
     Dosage: UNK

REACTIONS (2)
  - Pulmonary embolism [None]
  - Deep vein thrombosis [None]
